FAERS Safety Report 8045432-8 (Version None)
Quarter: 2012Q1

REPORT INFORMATION
  Report Type: 
  Country: None (occurrence: None)
  Receive Date: 20120113
  Receipt Date: 20120104
  Transmission Date: 20120608
  Serious: Yes (Hospitalization)
  Sender: FDA-Public Use
  Company Number: FR-B.I. PHARMACEUTICALS,INC./RIDGEFIELD-2011-EU-00138BY

PATIENT
  Sex: Male

DRUGS (8)
  1. OXAZEPAM [Concomitant]
     Dates: start: 20110912
  2. GENTAMICIN [Suspect]
     Dates: start: 20110914, end: 20110915
  3. AMOXICILLIN [Suspect]
     Indication: ENDOCARDITIS
     Route: 042
     Dates: start: 20110914, end: 20111010
  4. FUNGIZONE [Concomitant]
     Dates: start: 20110912
  5. ASPIRIN [Concomitant]
  6. TELMISARTAN [Suspect]
     Dosage: 80 MG
     Route: 048
     Dates: start: 20110913, end: 20111010
  7. PRAVASTATIN SODIUM [Suspect]
     Dosage: 20 MG
     Route: 048
     Dates: end: 20111010
  8. ACETAMINOPHEN [Concomitant]
     Dates: start: 20110911

REACTIONS (3)
  - DRUG HYPERSENSITIVITY [None]
  - RENAL FAILURE ACUTE [None]
  - DEHYDRATION [None]
